FAERS Safety Report 8174279-7 (Version None)
Quarter: 2012Q1

REPORT INFORMATION
  Report Type: 
  Country: None (occurrence: None)
  Receive Date: 20120229
  Receipt Date: 20120220
  Transmission Date: 20120608
  Serious: Yes (Hospitalization)
  Sender: FDA-Public Use
  Company Number: FR-JNJFOC-20120212042

PATIENT
  Sex: Male

DRUGS (1)
  1. STELARA [Suspect]
     Indication: PRODUCT USED FOR UNKNOWN INDICATION
     Route: 058
     Dates: start: 20110501, end: 20110901

REACTIONS (5)
  - URINARY TRACT INFECTION [None]
  - WEIGHT DECREASED [None]
  - URETHRECTOMY [None]
  - BLADDER ABLATION [None]
  - UROSTOMY [None]
